FAERS Safety Report 8838539 (Version 2)
Quarter: 2012Q4

REPORT INFORMATION
  Report Type: Report from Study
  Country: US (occurrence: US)
  Receive Date: 20121012
  Receipt Date: 20121210
  Transmission Date: 20130627
  Serious: Yes (Other)
  Sender: FDA-Public Use
  Company Number: US-ROCHE-1142160

PATIENT
  Sex: Female

DRUGS (6)
  1. PEG-INTERFERON ALFA 2A [Suspect]
     Indication: CHRONIC HEPATITIS C
     Route: 065
     Dates: start: 20120227
  2. BLINDED BMS-986094 [Suspect]
     Indication: CHRONIC HEPATITIS C
     Dosage: date of most recent dose:01/Mar/2012
     Route: 065
     Dates: start: 20111206
  3. RIBAVIRIN [Suspect]
     Indication: CHRONIC HEPATITIS C
     Route: 065
     Dates: start: 20120229
  4. XANAX [Concomitant]
     Indication: ANXIETY
     Dosage: Dose: 0.5 mg up to 3x/day
     Route: 065
     Dates: start: 20120731
  5. CITALOPRAM HYDROCHLORIDE [Concomitant]
     Route: 065
     Dates: start: 20120228
  6. ULTRAM [Concomitant]
     Indication: MUSCULOSKELETAL PAIN
     Route: 065

REACTIONS (1)
  - Cardiac disorder [Unknown]
